FAERS Safety Report 12803782 (Version 8)
Quarter: 2018Q3

REPORT INFORMATION
  Report Type: Report from Study
  Country: BR (occurrence: BR)
  Receive Date: 20161003
  Receipt Date: 20180925
  Transmission Date: 20181010
  Serious: Yes (Hospitalization, Other)
  Sender: FDA-Public Use
  Company Number: PHHY2016BR134026

PATIENT
  Age: 16 Year
  Sex: Female
  Weight: 54 kg

DRUGS (5)
  1. HYDREA [Concomitant]
     Active Substance: HYDROXYUREA
     Indication: SICKLE CELL ANAEMIA
     Dosage: 1 DF, QD (1 TABLET DAILY)
     Route: 048
  2. CARDIOSOL [Concomitant]
     Active Substance: NIFEDIPINE
     Indication: CARDIAC FAILURE
     Dosage: 25 MG, QD (2 TABLETS DAILY)
     Route: 065
  3. FOLIC ACID. [Concomitant]
     Active Substance: FOLIC ACID
     Indication: SICKLE CELL ANAEMIA
     Dosage: 2 DF, QD (2 TABLET DAILY) (SINCE AGE 2)
     Route: 048
  4. EXJADE [Suspect]
     Active Substance: DEFERASIROX
     Indication: SICKLE CELL ANAEMIA
     Dosage: 1000 MG (4 DISPERSIBLE TABLETS DAILY OF 250MG (PREVIOUSLY REPORTED AS 2 TABLETS OF 500 MG), QD
     Route: 048
     Dates: start: 2012
  5. EXJADE [Suspect]
     Active Substance: DEFERASIROX
     Dosage: 1000 MG, (USED 2 TABLETS OF 500 MG) (STOPPED APPROX 3 WEEKS AGO
     Route: 048

REACTIONS (16)
  - Pyrexia [Recovering/Resolving]
  - Haematocrit increased [Recovering/Resolving]
  - Malaise [Unknown]
  - Anaemia [Recovered/Resolved]
  - Haematocrit decreased [Recovering/Resolving]
  - Serum ferritin increased [Unknown]
  - Urinary tract infection [Recovered/Resolved]
  - Pain [Not Recovered/Not Resolved]
  - Pain in extremity [Recovering/Resolving]
  - Sickle cell anaemia with crisis [Unknown]
  - Pain [Recovered/Resolved]
  - Anaemia [Recovering/Resolving]
  - Back pain [Recovering/Resolving]
  - Infection [Recovered/Resolved]
  - Oropharyngeal pain [Recovering/Resolving]
  - Pharyngitis [Recovering/Resolving]

NARRATIVE: CASE EVENT DATE: 201609
